FAERS Safety Report 7420817-9 (Version None)
Quarter: 2011Q2

REPORT INFORMATION
  Report Type: 
  Country: None (occurrence: None)
  Receive Date: 20110418
  Receipt Date: 20110406
  Transmission Date: 20111010
  Serious: Yes (Disabling)
  Sender: FDA-Public Use
  Company Number: CZ-ROCHE-769971

PATIENT
  Sex: Female

DRUGS (4)
  1. FLUOROURACIL [Concomitant]
  2. OXALIPLATIN [Concomitant]
  3. FOLINIC ACID [Concomitant]
  4. BEVACIZUMAB [Suspect]
     Dosage: SINGLE DOSE : 360 MG
     Route: 042
     Dates: start: 20110205

REACTIONS (1)
  - PALMAR-PLANTAR ERYTHRODYSAESTHESIA SYNDROME [None]
